FAERS Safety Report 22639803 (Version 1)
Quarter: 2023Q2

REPORT INFORMATION
  Report Type: Spontaneous
  Country: ES (occurrence: ES)
  Receive Date: 20230626
  Receipt Date: 20230626
  Transmission Date: 20230722
  Serious: Yes (Other)
  Sender: FDA-Public Use
  Company Number: None

PATIENT
  Age: 63 Year
  Sex: Female

DRUGS (3)
  1. LINEZOLID [Suspect]
     Active Substance: LINEZOLID
     Indication: Sepsis
     Dosage: 600 MG, 2X/DAY (FREQ: 12 H)
     Route: 048
     Dates: start: 20230510, end: 20230522
  2. METAMIZOLE [Suspect]
     Active Substance: METAMIZOLE
     Dosage: 2 G, 3X/DAY (FREQ: 8 H)
     Route: 042
     Dates: start: 20230510
  3. CLOXACILLIN [Suspect]
     Active Substance: CLOXACILLIN
     Indication: Sepsis
     Dosage: 1 G (FREQUENCY: 4 HOURS)
     Route: 042
     Dates: start: 20230511, end: 20230603

REACTIONS (1)
  - Drug reaction with eosinophilia and systemic symptoms [Recovered/Resolved]

NARRATIVE: CASE EVENT DATE: 20230517
